FAERS Safety Report 8320386-5 (Version None)
Quarter: 2012Q2

REPORT INFORMATION
  Report Type: 
  Country: None (occurrence: None)
  Receive Date: 20120426
  Receipt Date: 20120426
  Transmission Date: 20120825
  Serious: Yes (Other)
  Sender: FDA-Public Use
  Company Number: None

PATIENT
  Age: 76 Year
  Sex: Female
  Weight: 65.7716 kg

DRUGS (1)
  1. CIPROFLOXACIN [Suspect]
     Indication: URINARY TRACT INFECTION
     Dosage: 1 TAB 2X A DAY ORAL
     Route: 048
     Dates: start: 20111205, end: 20111208

REACTIONS (6)
  - BURNING SENSATION [None]
  - MOBILITY DECREASED [None]
  - GAIT DISTURBANCE [None]
  - MUSCULAR WEAKNESS [None]
  - PARAESTHESIA [None]
  - BONE DISORDER [None]
